FAERS Safety Report 19657327 (Version 3)
Quarter: 2021Q4

REPORT INFORMATION
  Report Type: Spontaneous
  Country: US (occurrence: US)
  Receive Date: 20210804
  Receipt Date: 20211130
  Transmission Date: 20220303
  Serious: Yes (Hospitalization, Other)
  Sender: FDA-Public Use
  Company Number: US-GILEAD-2021-0542353

PATIENT
  Sex: Male
  Weight: 92.063 kg

DRUGS (18)
  1. VIREAD [Suspect]
     Active Substance: TENOFOVIR DISOPROXIL FUMARATE
     Indication: HIV infection
     Dosage: UNK
     Route: 065
     Dates: start: 2004, end: 2005
  2. VIREAD [Suspect]
     Active Substance: TENOFOVIR DISOPROXIL FUMARATE
     Dosage: UNK
     Route: 048
     Dates: start: 2005
  3. TRUVADA [Suspect]
     Active Substance: EMTRICITABINE\TENOFOVIR DISOPROXIL FUMARATE
     Indication: HIV infection
     Dosage: UNK
     Route: 048
     Dates: start: 2005
  4. PREZISTA [Concomitant]
     Active Substance: DARUNAVIR ETHANOLATE
  5. RETROVIR [Concomitant]
     Active Substance: ZIDOVUDINE
  6. TIVICAY [Concomitant]
     Active Substance: DOLUTEGRAVIR SODIUM
  7. CASODEX [Concomitant]
     Active Substance: BICALUTAMIDE
  8. HYDROXYZINE [Concomitant]
     Active Substance: HYDROXYZINE HYDROCHLORIDE
  9. ISOSORBIDE [Concomitant]
     Active Substance: ISOSORBIDE
  10. NIFEDIPINE [Concomitant]
     Active Substance: NIFEDIPINE
  11. CRESTOR [Concomitant]
     Active Substance: ROSUVASTATIN CALCIUM
  12. DENOSUMAB [Concomitant]
     Active Substance: DENOSUMAB
  13. LANTUS [Concomitant]
     Active Substance: INSULIN GLARGINE
  14. LUPRON [Concomitant]
     Active Substance: LEUPROLIDE ACETATE
  15. METOPROLOL [Concomitant]
     Active Substance: METOPROLOL
  16. FISH OIL [Concomitant]
     Active Substance: FISH OIL
  17. PRASUGREL [Concomitant]
     Active Substance: PRASUGREL
  18. ZYLOPRIM [Concomitant]
     Active Substance: ALLOPURINOL

REACTIONS (11)
  - End stage renal disease [Not Recovered/Not Resolved]
  - Pneumonia [Not Recovered/Not Resolved]
  - Chronic kidney disease [Not Recovered/Not Resolved]
  - Acute kidney injury [Recovered/Resolved]
  - Acute kidney injury [Recovered/Resolved]
  - Renal failure [Unknown]
  - Emotional distress [Not Recovered/Not Resolved]
  - Anhedonia [Not Recovered/Not Resolved]
  - Anxiety [Not Recovered/Not Resolved]
  - Pain [Not Recovered/Not Resolved]
  - Renal pain [Not Recovered/Not Resolved]

NARRATIVE: CASE EVENT DATE: 20100101
